FAERS Safety Report 8595649-9 (Version None)
Quarter: 2012Q3

REPORT INFORMATION
  Report Type: 
  Country: None (occurrence: None)
  Receive Date: 20120815
  Receipt Date: 20120806
  Transmission Date: 20120928
  Serious: Yes (Other)
  Sender: FDA-Public Use
  Company Number: IT-ASTRAZENECA-2012SE55822

PATIENT
  Age: 54 Year
  Sex: Female

DRUGS (2)
  1. QUETIAPINE [Suspect]
     Indication: PSYCHOMOTOR HYPERACTIVITY
     Route: 048
  2. DIAZEPAM [Suspect]
     Indication: PSYCHOMOTOR HYPERACTIVITY

REACTIONS (6)
  - ELECTROCARDIOGRAM DELTA WAVES ABNORMAL [None]
  - SINUS BRADYCARDIA [None]
  - HYPOTHERMIA [None]
  - ELECTROCARDIOGRAM QT PROLONGED [None]
  - HYPERNATRAEMIA [None]
  - OFF LABEL USE [None]
